FAERS Safety Report 20644889 (Version 2)
Quarter: 2022Q2

REPORT INFORMATION
  Report Type: Spontaneous
  Country: US (occurrence: US)
  Receive Date: 20220328
  Receipt Date: 20220415
  Transmission Date: 20220721
  Serious: No
  Sender: FDA-Public Use
  Company Number: US-PFIZER INC-202200431390

PATIENT
  Age: 64 Year
  Sex: Female
  Weight: 70.76 kg

DRUGS (2)
  1. LIPITOR [Suspect]
     Active Substance: ATORVASTATIN CALCIUM
     Indication: Blood cholesterol increased
     Dosage: 80 MG
  2. LIPITOR [Suspect]
     Active Substance: ATORVASTATIN CALCIUM
     Indication: Blood triglycerides increased

REACTIONS (8)
  - Insomnia [Unknown]
  - Intentional product misuse [Unknown]
  - Expired product administered [Unknown]
  - Therapeutic product effect decreased [Unknown]
  - Throat tightness [Unknown]
  - Urticaria [Unknown]
  - Swollen tongue [Unknown]
  - Pharyngeal swelling [Unknown]

NARRATIVE: CASE EVENT DATE: 20210901
